FAERS Safety Report 7825678-1 (Version None)
Quarter: 2011Q4

REPORT INFORMATION
  Report Type: 
  Country: None (occurrence: None)
  Receive Date: 20111019
  Receipt Date: 20111013
  Transmission Date: 20120403
  Serious: Yes (Other)
  Sender: FDA-Public Use
  Company Number: FR-ROCHE-1002172

PATIENT
  Sex: Male

DRUGS (1)
  1. ISOTRETINOIN [Suspect]
     Indication: ACNE CYSTIC
     Dates: start: 19980127, end: 19980627

REACTIONS (13)
  - DEPRESSION [None]
  - HALLUCINATION [None]
  - ILL-DEFINED DISORDER [None]
  - SUICIDE ATTEMPT [None]
  - ARTHRALGIA [None]
  - GASTROINTESTINAL DISORDER [None]
  - DECREASED ACTIVITY [None]
  - ANXIETY [None]
  - CHEILITIS [None]
  - ERYTHEMA [None]
  - MENTAL DISORDER [None]
  - ABNORMAL BEHAVIOUR [None]
  - DRY SKIN [None]
